FAERS Safety Report 20516500 (Version 2)
Quarter: 2022Q1

REPORT INFORMATION
  Report Type: Report from Study
  Country: DE (occurrence: DE)
  Receive Date: 20220225
  Receipt Date: 20220321
  Transmission Date: 20220423
  Serious: Yes (Other)
  Sender: FDA-Public Use
  Company Number: DE-ABBVIE-22K-062-4290251-00

PATIENT
  Sex: Female

DRUGS (2)
  1. HUMIRA [Suspect]
     Active Substance: ADALIMUMAB
     Indication: Crohn^s disease
     Route: 058
     Dates: start: 20170209, end: 20211111
  2. CORTISONE [Concomitant]
     Active Substance: CORTISONE
     Indication: Crohn^s disease
     Route: 065
     Dates: start: 2017

REACTIONS (13)
  - Systemic lupus erythematosus [Not Recovered/Not Resolved]
  - Lip pain [Recovered/Resolved]
  - Lip dry [Recovered/Resolved]
  - Stress [Recovered/Resolved]
  - Condition aggravated [Recovered/Resolved]
  - Antinuclear antibody increased [Not Recovered/Not Resolved]
  - Rash [Recovered/Resolved]
  - Oral discomfort [Recovered/Resolved]
  - Injection site erythema [Recovered/Resolved]
  - Injection site swelling [Recovered/Resolved]
  - Injection site pruritus [Recovered/Resolved]
  - Back pain [Not Recovered/Not Resolved]
  - Pain [Unknown]

NARRATIVE: CASE EVENT DATE: 20200101
